FAERS Safety Report 4506620-8 (Version None)
Quarter: 2004Q4

REPORT INFORMATION
  Report Type: 
  Country: None (occurrence: None)
  Receive Date: 20041122
  Receipt Date: 20041116
  Transmission Date: 20050328
  Serious: Yes (Hospitalization)
  Sender: FDA-Public Use
  Company Number: US-MERCK-0411USA02813

PATIENT
  Age: 77 Year
  Sex: Male

DRUGS (4)
  1. PROSCAR [Suspect]
     Indication: BENIGN PROSTATIC HYPERPLASIA
     Route: 048
     Dates: start: 20030101
  2. TAMSULOSIN HYDROCHLORIDE [Concomitant]
     Route: 065
  3. METOPROLOL [Concomitant]
     Route: 065
  4. DOCUSATE SODIUM [Concomitant]
     Route: 065

REACTIONS (2)
  - GASTRIC CANCER [None]
  - INTESTINAL STOMA COMPLICATION [None]
